FAERS Safety Report 7693671-8 (Version None)
Quarter: 2011Q3

REPORT INFORMATION
  Report Type: 
  Country: None (occurrence: None)
  Receive Date: 20110819
  Receipt Date: 20110810
  Transmission Date: 20111222
  Serious: Yes (Hospitalization, Other)
  Sender: FDA-Public Use
  Company Number: PL-ROCHE-796169

PATIENT
  Sex: Female
  Weight: 58 kg

DRUGS (1)
  1. HERCEPTIN [Suspect]
     Route: 042
     Dates: start: 20110726, end: 20110726

REACTIONS (4)
  - GRUNTING [None]
  - SENSATION OF FOREIGN BODY [None]
  - COUGH [None]
  - PYREXIA [None]
